FAERS Safety Report 4578766-X (Version None)
Quarter: 2005Q1

REPORT INFORMATION
  Report Type: 
  Country: None (occurrence: None)
  Receive Date: 20050211
  Receipt Date: 20050201
  Transmission Date: 20050727
  Serious: Yes (Hospitalization)
  Sender: FDA-Public Use
  Company Number: BR-JNJFOC-20050201992

PATIENT
  Age: 30 Year
  Sex: Female
  Weight: 57 kg

DRUGS (7)
  1. ORTHO EVRA [Suspect]
     Indication: CONTRACEPTION
     Route: 062
  2. DIPYRONE [Concomitant]
     Indication: PAIN
  3. LISADOR [Concomitant]
  4. LISADOR [Concomitant]
  5. LISADOR [Concomitant]
     Indication: PAIN
  6. ARCOXIA [Concomitant]
  7. CEFAMOX [Concomitant]
     Indication: ANTIINFLAMMATORY THERAPY

REACTIONS (3)
  - DENTAL OPERATION [None]
  - JAW OPERATION [None]
  - VAGINAL HAEMORRHAGE [None]
